FAERS Safety Report 8273994 (Version 2)
Quarter: 2015Q2

REPORT INFORMATION
  Report Type: Spontaneous
  Country: ES (occurrence: ES)
  Receive Date: 20111204
  Receipt Date: 20150519
  Transmission Date: 20150821
  Serious: Yes (Other)
  Sender: FDA-Public Use
  Company Number: PHHY2011ES104876

PATIENT

DRUGS (1)
  1. PAMIDRONATE [Suspect]
     Active Substance: PAMIDRONATE DISODIUM
     Indication: OSTEOPOROSIS
     Route: 042

REACTIONS (3)
  - Dyspnoea [Recovered/Resolved]
  - Pruritus [Recovered/Resolved]
  - Infusion related reaction [Recovered/Resolved]
